FAERS Safety Report 16777593 (Version 1)
Quarter: 2019Q4

REPORT INFORMATION
  Report Type: Spontaneous
  Country: US (occurrence: US)
  Receive Date: 20190905
  Receipt Date: 20190905
  Transmission Date: 20200122
  Serious: Yes (Disabling, Other)
  Sender: FDA-Public Use
  Company Number: None

PATIENT
  Age: 71 Year
  Sex: Female
  Weight: 74.25 kg

DRUGS (22)
  1. ROZEREM [Concomitant]
     Active Substance: RAMELTEON
  2. POLYETHYLENE GLYCOL [Concomitant]
     Active Substance: POLYETHYLENE GLYCOLS
  3. FINASTERIDE. [Concomitant]
     Active Substance: FINASTERIDE
  4. ROSUVASTATIN. [Concomitant]
     Active Substance: ROSUVASTATIN
  5. OMEGA 3 [Concomitant]
     Active Substance: OMEGA-3 FATTY ACIDS
  6. ALPRAZOLAM. [Concomitant]
     Active Substance: ALPRAZOLAM
  7. URSODIOL. [Concomitant]
     Active Substance: URSODIOL
  8. ESTRADIOL. [Concomitant]
     Active Substance: ESTRADIOL
  9. VITAMIN D3 [Concomitant]
     Active Substance: CHOLECALCIFEROL
  10. ESCITALOPRAM [Concomitant]
     Active Substance: ESCITALOPRAM OXALATE
  11. JUBILA [Concomitant]
  12. ZICAM NOS [Suspect]
     Active Substance: ACETAMINOPHEN\CHLORPHENIRAMINE MALEATE\DEXTROMETHORPHAN HYDROBROMIDE\PHENYLEPHRINE HYDROCHLORIDE OR ACETAMINOPHEN\DEXTROMETHORPHAN HYDROBROMIDE\DOXYLAMINE SUCCINATE\PHENYLEPHRINE HYDROCHLORIDE OR HOMEOPATHICS
     Indication: NASOPHARYNGITIS
     Dosage: ?          QUANTITY:1 RAPIDMELT LOZENGE;OTHER FREQUENCY:EVERY THREE HOURS;?
     Route: 048
     Dates: start: 20190823, end: 20190831
  13. NATEGLINIDE. [Concomitant]
     Active Substance: NATEGLINIDE
  14. EZETIMIBE. [Concomitant]
     Active Substance: EZETIMIBE
  15. LUMIGAN [Concomitant]
     Active Substance: BIMATOPROST
  16. MAGNESIUM WITH VIT D [Concomitant]
  17. COLLAGEN [Concomitant]
     Active Substance: COLLAGEN
  18. LANSOPRAZOLE. [Concomitant]
     Active Substance: LANSOPRAZOLE
  19. RESTASIS [Concomitant]
     Active Substance: CYCLOSPORINE
  20. ALPHAGAN P [Concomitant]
     Active Substance: BRIMONIDINE TARTRATE
  21. AZOPT [Concomitant]
     Active Substance: BRINZOLAMIDE
  22. SCHIFF CALCIMUM [Concomitant]

REACTIONS (7)
  - Product complaint [None]
  - Tongue discomfort [None]
  - Dysgeusia [None]
  - Ageusia [None]
  - Abdominal discomfort [None]
  - Disability [None]
  - Taste disorder [None]

NARRATIVE: CASE EVENT DATE: 20190824
